FAERS Safety Report 8818248 (Version 2)
Quarter: 2013Q2

REPORT INFORMATION
  Report Type: Spontaneous
  Country: US (occurrence: US)
  Receive Date: 20121001
  Receipt Date: 20130423
  Transmission Date: 20140414
  Serious: Yes (Hospitalization, Other)
  Sender: FDA-Public Use
  Company Number: US-GLAXOSMITHKLINE-A0995284A

PATIENT
  Age: 28 Year
  Sex: Female

DRUGS (3)
  1. LAMICTAL [Suspect]
     Indication: PRODUCT USED FOR UNKNOWN INDICATION
     Dosage: 100MG PER DAY
     Route: 048
  2. LITHIUM CARBONATE [Concomitant]
  3. UNKNOWN MEDICATION [Concomitant]

REACTIONS (4)
  - Premature labour [Not Recovered/Not Resolved]
  - Anaemia [Not Recovered/Not Resolved]
  - Haemoglobin decreased [Not Recovered/Not Resolved]
  - Exposure during pregnancy [Unknown]
